FAERS Safety Report 21214285 (Version 1)
Quarter: 2022Q3

REPORT INFORMATION
  Report Type: Spontaneous
  Country: US (occurrence: US)
  Receive Date: 20220816
  Receipt Date: 20220816
  Transmission Date: 20221027
  Serious: No
  Sender: FDA-Public Use
  Company Number: US-SA-SAC20220811000846

PATIENT
  Age: 47 Year
  Sex: Female

DRUGS (2)
  1. AUBAGIO [Suspect]
     Active Substance: TERIFLUNOMIDE
     Indication: Multiple sclerosis
     Dosage: 14 MG, QD
     Route: 058
     Dates: start: 20220520
  2. AVONEX [Suspect]
     Active Substance: INTERFERON BETA-1A
     Dosage: UNK

REACTIONS (2)
  - Injection site swelling [Recovering/Resolving]
  - Hypoaesthesia [Recovering/Resolving]
